FAERS Safety Report 6475286-2 (Version None)
Quarter: 2009Q4

REPORT INFORMATION
  Report Type: 
  Country: None (occurrence: None)
  Receive Date: 20091204
  Receipt Date: 20090409
  Transmission Date: 20100525
  Serious: Yes (Other)
  Sender: FDA-Public Use
  Company Number: US-ELI_LILLY_AND_COMPANY-US200904002105

PATIENT
  Age: 31 Year
  Sex: Female

DRUGS (4)
  1. CYMBALTA [Suspect]
     Indication: MAJOR DEPRESSION
     Dosage: 60 MG, 2/D
     Dates: start: 20050101
  2. WELLBUTRIN [Concomitant]
  3. TRAZODONE [Concomitant]
  4. SEROQUEL [Concomitant]

REACTIONS (2)
  - CARCINOID TUMOUR [None]
  - URINE ANALYSIS ABNORMAL [None]
